FAERS Safety Report 18236009 (Version 1)
Quarter: 2020Q3

REPORT INFORMATION
  Report Type: Spontaneous
  Country: ES (occurrence: ES)
  Receive Date: 20200905
  Receipt Date: 20200905
  Transmission Date: 20201103
  Serious: Yes (Other)
  Sender: FDA-Public Use
  Company Number: ES-CELLTRION INC.-2020ES025902

PATIENT

DRUGS (5)
  1. CYCLOPHOSPHAMIDE. [Concomitant]
     Active Substance: CYCLOPHOSPHAMIDE
     Indication: OPTIC NEURITIS
     Dosage: 9 MG/KG/I.V./WEEKLY
     Route: 042
  2. PREDNISONE. [Concomitant]
     Active Substance: PREDNISONE
     Indication: OPTIC NEURITIS
     Dosage: BEFORE BIOLOGIC INITIATION: MEAN MAX DOSE OF 53.7 +/? 17.7 MG/DAY
     Route: 048
  3. PREDNISONE. [Concomitant]
     Active Substance: PREDNISONE
     Dosage: MAX DOSE (MG/DAY):60
     Route: 048
  4. METHOTREXATE. [Concomitant]
     Active Substance: METHOTREXATE
     Indication: OPTIC NEURITIS
     Dosage: 15 MG MG/SC OR PO/WEEK
  5. INFLIXIMAB (UNKNOWN) [Suspect]
     Active Substance: INFLIXIMAB
     Indication: OPTIC NEURITIS
     Dosage: 5 MG/KG/I.V. AT 0, 2 AND 6 WEEKS AND THEN EVERY 8 WEEKS
     Route: 042

REACTIONS (5)
  - Optic neuritis [Unknown]
  - Drug specific antibody [Unknown]
  - Off label use [Unknown]
  - Drug effective for unapproved indication [Unknown]
  - Tachyphylaxis [Unknown]
